FAERS Safety Report 5049412-6 (Version None)
Quarter: 2006Q3

REPORT INFORMATION
  Report Type: 
  Country: None (occurrence: None)
  Receive Date: 20060711
  Receipt Date: 20060711
  Transmission Date: 20061208
  Serious: Yes (Disabling)
  Sender: FDA-Public Use
  Company Number: None

PATIENT
  Sex: Male
  Weight: 120 kg

DRUGS (10)
  1. LAMOTRIGINE [Suspect]
     Indication: BIPOLAR I DISORDER
     Dosage: 100MG  QHS   PO
     Route: 048
     Dates: start: 20051013, end: 20060504
  2. APAP TAB [Concomitant]
  3. ASPIRIN [Concomitant]
  4. FOLIC ACID [Concomitant]
  5. LANTUS [Concomitant]
  6. METFORMIN [Concomitant]
  7. PROTONIX [Concomitant]
  8. AVANDIA [Concomitant]
  9. TRAZODONE HCL [Concomitant]
  10. EFFEXOR [Concomitant]

REACTIONS (1)
  - GAMMA-GLUTAMYLTRANSFERASE INCREASED [None]
